FAERS Safety Report 4889446-5 (Version None)
Quarter: 2006Q1

REPORT INFORMATION
  Report Type: 
  Country: None (occurrence: None)
  Receive Date: 20060120
  Receipt Date: 20060112
  Transmission Date: 20060701
  Serious: Yes (Hospitalization, Other)
  Sender: FDA-Public Use
  Company Number: HQWYE170103JAN06

PATIENT
  Age: 57 Year
  Sex: Male

DRUGS (18)
  1. RAPAMUNE [Suspect]
     Indication: PROPHYLAXIS AGAINST TRANSPLANT REJECTION
     Dosage: SEE IMAGE
     Route: 048
     Dates: start: 20051220, end: 20060102
  2. RAPAMUNE [Suspect]
     Indication: PROPHYLAXIS AGAINST TRANSPLANT REJECTION
     Dosage: SEE IMAGE
     Route: 048
     Dates: start: 20060103, end: 20060108
  3. MYCOPHENOLATE MOFETIL                     (MYCOPHENOLATE MOFETIL, ) [Suspect]
     Indication: PROPHYLAXIS AGAINST TRANSPLANT REJECTION
     Dosage: SEE IMAGE
     Route: 065
     Dates: start: 20051212, end: 20051227
  4. MYCOPHENOLATE MOFETIL                     (MYCOPHENOLATE MOFETIL, ) [Suspect]
     Indication: PROPHYLAXIS AGAINST TRANSPLANT REJECTION
     Dosage: SEE IMAGE
     Route: 065
     Dates: start: 20051228, end: 20051228
  5. MYCOPHENOLATE MOFETIL                     (MYCOPHENOLATE MOFETIL, ) [Suspect]
     Indication: PROPHYLAXIS AGAINST TRANSPLANT REJECTION
     Dosage: SEE IMAGE
     Route: 065
     Dates: start: 20051229, end: 20060105
  6. MYCOPHENOLATE MOFETIL                     (MYCOPHENOLATE MOFETIL, ) [Suspect]
     Indication: PROPHYLAXIS AGAINST TRANSPLANT REJECTION
     Dosage: SEE IMAGE
     Route: 065
     Dates: start: 20060106, end: 20060110
  7. MYCOPHENOLATE MOFETIL                     (MYCOPHENOLATE MOFETIL, ) [Suspect]
     Indication: PROPHYLAXIS AGAINST TRANSPLANT REJECTION
     Dosage: SEE IMAGE
     Route: 065
     Dates: start: 20060111, end: 20060111
  8. SULFAMETHOXAZOLE + TRIMETHOPRIM [Concomitant]
  9. GANCICLOVIR SODIUM [Concomitant]
  10. PROTONIX [Concomitant]
  11. FUROSEMIDE [Concomitant]
  12. METRONIDAZOLE [Concomitant]
  13. VALGANCICLOVIR (VALGANCICLOVIR) [Concomitant]
  14. ACETAMINOPHEN [Concomitant]
  15. SACCHAROMYCES BOULARDII [Concomitant]
  16. ENOXAPARIN SODIUM [Concomitant]
  17. ALBUMIN (HUMAN) [Concomitant]
  18. PREDNISONE [Concomitant]

REACTIONS (3)
  - HAEMODIALYSIS [None]
  - LEUKOPENIA [None]
  - RENAL TUBULAR NECROSIS [None]
